FAERS Safety Report 8500984-6 (Version None)
Quarter: 2012Q3

REPORT INFORMATION
  Report Type: 
  Country: None (occurrence: None)
  Receive Date: 20120710
  Receipt Date: 20120703
  Transmission Date: 20120928
  Serious: Yes (Hospitalization, Disabling, Other)
  Sender: FDA-Public Use
  Company Number: GB-B.I. PHARMACEUTICALS,INC./RIDGEFIELD-2012-UK-00878UK

PATIENT
  Sex: Male

DRUGS (2)
  1. WARFARIN SODIUM [Concomitant]
     Indication: PERIPHERAL VASCULAR DISORDER
  2. PRADAXA [Suspect]
     Indication: ATRIAL FIBRILLATION
     Dosage: 110 MG

REACTIONS (2)
  - PERIPHERAL ISCHAEMIA [None]
  - LEG AMPUTATION [None]
